FAERS Safety Report 19463677 (Version 2)
Quarter: 2021Q3

REPORT INFORMATION
  Report Type: Report from Study
  Country: US (occurrence: US)
  Receive Date: 20210625
  Receipt Date: 20210719
  Transmission Date: 20211014
  Serious: Yes (Other)
  Sender: FDA-Public Use
  Company Number: US-UCBSA-2021012328

PATIENT
  Age: 64 Year
  Sex: Female

DRUGS (1)
  1. CERTOLIZUMAB PEGOL [Suspect]
     Active Substance: CERTOLIZUMAB PEGOL
     Indication: PUSTULAR PSORIASIS
     Dosage: 400 MILLIGRAM, EV 2 WEEKS(QOW)
     Route: 058
     Dates: start: 20210308

REACTIONS (6)
  - Injection site discolouration [Not Recovered/Not Resolved]
  - Osteoporosis [Not Recovered/Not Resolved]
  - Injection site erythema [Not Recovered/Not Resolved]
  - Blood alkaline phosphatase abnormal [Unknown]
  - Pustular psoriasis [Not Recovered/Not Resolved]
  - Product use in unapproved indication [Unknown]

NARRATIVE: CASE EVENT DATE: 20210308
